FAERS Safety Report 8837904 (Version 2)
Quarter: 2013Q1

REPORT INFORMATION
  Report Type: Spontaneous
  Country: FR (occurrence: FR)
  Receive Date: 20121012
  Receipt Date: 20130220
  Transmission Date: 20140127
  Serious: Yes (Hospitalization)
  Sender: FDA-Public Use
  Company Number: FR-PFIZER INC-2012246935

PATIENT
  Age: 46 Year
  Sex: Male

DRUGS (16)
  1. ARACYTINE [Suspect]
     Indication: ACUTE MYELOID LEUKAEMIA
     Dosage: 5.3 G, 2X/DAY
     Route: 042
     Dates: start: 20120714, end: 20120717
  2. TAZOCILLINE [Concomitant]
     Dosage: 4 G, 4X/DAY
     Route: 042
     Dates: start: 20120713
  3. AMSALYO [Concomitant]
     Indication: ACUTE LYMPHOCYTIC LEUKAEMIA
     Dosage: 200 MG/M2, 1X/DAY
     Route: 042
     Dates: start: 20120713, end: 20120715
  4. VANCOMYCIN [Concomitant]
     Dosage: 2.25 G, 1X/DAY
     Route: 042
     Dates: start: 20120711, end: 20120713
  5. CEFTRIAXONE SODIUM [Concomitant]
     Dosage: UNK
     Route: 042
     Dates: start: 20120709, end: 20120711
  6. ZOPHREN [Concomitant]
     Indication: PROPHYLAXIS OF NAUSEA AND VOMITING
     Dosage: 8 MG, 3X/DAY
  7. PLITICAN [Concomitant]
     Indication: PROPHYLAXIS OF NAUSEA AND VOMITING
     Dosage: 6 DF, UNK
     Route: 051
  8. MORPHINE [Concomitant]
     Indication: PAIN
     Route: 051
  9. CELLUVISC [Concomitant]
     Indication: DRY EYE
     Dosage: 4 TO 6 TIMES PER DAY
     Route: 047
  10. CHIBRO-CADRON [Concomitant]
     Dosage: UNK
     Route: 047
     Dates: start: 20120713, end: 20120720
  11. PARACETAMOL [Concomitant]
     Indication: PAIN
     Dosage: 4 G, 1X/DAY
     Route: 048
  12. NOFAXIL [Concomitant]
     Indication: ANTIFUNGAL PROPHYLAXIS
     Dosage: 200 MG, 3X/DAY
     Route: 048
     Dates: start: 20120713
  13. SMECTA [Concomitant]
     Indication: DIARRHOEA
     Dosage: 3 DF, 1X/DAY
     Route: 048
  14. ULCAR [Concomitant]
     Indication: GASTRODUODENAL ULCER
     Dosage: 4 DF, 1X/DAY
     Route: 048
  15. IMOVANE [Concomitant]
     Indication: SLEEP DISORDER
     Dosage: 1 DF, 1X/DAY
     Route: 048
  16. LAROXYL [Concomitant]
     Dosage: 5 TO 10 DROPS IN THE EVENING
     Route: 048

REACTIONS (1)
  - Cerebellar syndrome [Recovering/Resolving]
